FAERS Safety Report 5316561-4 (Version None)
Quarter: 2007Q2

REPORT INFORMATION
  Report Type: 
  Country: None (occurrence: None)
  Receive Date: 20070504
  Receipt Date: 20070427
  Transmission Date: 20071010
  Serious: Yes (Hospitalization, Other)
  Sender: FDA-Public Use
  Company Number: US-AVENTIS-200712630US

PATIENT
  Sex: Female

DRUGS (2)
  1. LOVENOX [Suspect]
     Dates: start: 20070301
  2. LOVENOX [Suspect]
     Dates: start: 20050901

REACTIONS (10)
  - BRONCHITIS [None]
  - CHEST PAIN [None]
  - DRUG INEFFECTIVE [None]
  - INJECTION SITE HAEMORRHAGE [None]
  - MOBILITY DECREASED [None]
  - NODULE [None]
  - PAIN IN EXTREMITY [None]
  - PLEURAL EFFUSION [None]
  - SYNOVIAL CYST [None]
  - THROMBOSIS [None]
